FAERS Safety Report 10484908 (Version 3)
Quarter: 2015Q2

REPORT INFORMATION
  Report Type: Spontaneous
  Country: US (occurrence: US)
  Receive Date: 20140930
  Receipt Date: 20150615
  Transmission Date: 20150821
  Serious: Yes (Hospitalization, Other)
  Sender: FDA-Public Use
  Company Number: US-BAYER-2014-144702

PATIENT
  Age: 23 Year
  Sex: Female
  Weight: 77.98 kg

DRUGS (2)
  1. MIRENA [Suspect]
     Active Substance: LEVONORGESTREL
     Indication: CONTRACEPTION
     Dosage: 20 MCG/24HR, CONT
     Route: 015
     Dates: start: 20101119, end: 20131023
  2. TRAMADOL [Concomitant]
     Active Substance: TRAMADOL

REACTIONS (9)
  - Staphylococcal infection [None]
  - Injury [None]
  - Genital haemorrhage [None]
  - Medical device pain [None]
  - Device difficult to use [None]
  - Post procedural infection [None]
  - Embedded device [None]
  - Device dislocation [None]
  - Scar [None]

NARRATIVE: CASE EVENT DATE: 2013
